FAERS Safety Report 8797152 (Version 2)
Quarter: 2013Q1

REPORT INFORMATION
  Report Type: Spontaneous
  Country: HR (occurrence: HR)
  Receive Date: 20120920
  Receipt Date: 20130322
  Transmission Date: 20140127
  Serious: Yes (Hospitalization, Other)
  Sender: FDA-Public Use
  Company Number: HR-JNJFOC-20120906156

PATIENT
  Age: 38 Year
  Sex: Male

DRUGS (6)
  1. RISPOLEPT [Suspect]
     Indication: MENTAL DISORDER
     Dosage: 0,0,1
     Route: 048
     Dates: start: 2006, end: 2011
  2. RISPOLEPT [Suspect]
     Indication: DELUSIONAL DISORDER, UNSPECIFIED TYPE
     Dosage: 0,0,1
     Route: 048
     Dates: start: 2006, end: 2011
  3. RISPOLEPT [Suspect]
     Indication: SCHIZOPHRENIA
     Dosage: 0,0,1
     Route: 048
     Dates: start: 2006, end: 2011
  4. DIAZEPAM [Suspect]
     Indication: PRODUCT USED FOR UNKNOWN INDICATION
     Route: 065
  5. CONTROLOC [Suspect]
     Indication: PRODUCT USED FOR UNKNOWN INDICATION
     Route: 065
  6. PROPRANOLOL [Suspect]
     Indication: PRODUCT USED FOR UNKNOWN INDICATION
     Route: 065

REACTIONS (3)
  - Oesophageal varices haemorrhage [Recovered/Resolved]
  - Alcoholism [Recovered/Resolved]
  - Psychotic disorder [Recovered/Resolved]
